FAERS Safety Report 24550720 (Version 1)
Quarter: 2024Q4

REPORT INFORMATION
  Report Type: Spontaneous
  Country: RS (occurrence: RS)
  Receive Date: 20241025
  Receipt Date: 20241025
  Transmission Date: 20250114
  Serious: Yes (Other)
  Sender: BRISTOL-MYERS SQUIBB COMPANY
  Company Number: RS-BRISTOL-MYERS SQUIBB COMPANY-2024-166642

PATIENT
  Age: 37 Year
  Sex: Male

DRUGS (2)
  1. OPDIVO [Suspect]
     Active Substance: NIVOLUMAB
     Indication: Metastatic malignant melanoma
     Dosage: 4 CYCLES
     Route: 042
     Dates: start: 20240121, end: 20240426
  2. YERVOY [Suspect]
     Active Substance: IPILIMUMAB
     Indication: Metastatic malignant melanoma
     Route: 042
     Dates: start: 20240121, end: 20240426

REACTIONS (14)
  - Chills [Unknown]
  - Body temperature increased [Unknown]
  - Myalgia [Unknown]
  - Diplopia [Unknown]
  - Exophthalmos [Unknown]
  - Eye pain [Unknown]
  - Arthralgia [Unknown]
  - Malignant neoplasm progression [Unknown]
  - Blood lactate dehydrogenase increased [Unknown]
  - Immune-mediated hypothyroidism [Unknown]
  - Vitiligo [Unknown]
  - Anaemia [Unknown]
  - Blood creatinine increased [Unknown]
  - Blood uric acid increased [Unknown]

NARRATIVE: CASE EVENT DATE: 20240101
